FAERS Safety Report 17240373 (Version 11)
Quarter: 2021Q2

REPORT INFORMATION
  Report Type: Other
  Country: CA (occurrence: CA)
  Receive Date: 20200107
  Receipt Date: 20210525
  Transmission Date: 20210716
  Serious: Yes (Death, Hospitalization, Other)
  Sender: FDA-Public Use
  Company Number: CA-ROCHE-2282467

PATIENT
  Age: 90 Year
  Sex: Male

DRUGS (37)
  1. ESBRIET [Suspect]
     Active Substance: PIRFENIDONE
     Route: 048
     Dates: start: 20181006, end: 20190307
  2. ESBRIET [Suspect]
     Active Substance: PIRFENIDONE
     Dosage: 8 CAPSULES DAILY, REGIMEN UNKNOWN
     Route: 048
     Dates: start: 201910, end: 201910
  3. ESBRIET [Suspect]
     Active Substance: PIRFENIDONE
     Route: 048
     Dates: start: 201910, end: 201911
  4. IRON FERROUS GLUCONATE [Concomitant]
     Active Substance: FERROUS GLUCONATE
     Indication: PRODUCT USED FOR UNKNOWN INDICATION
     Dosage: 35MG/325MG
     Route: 065
  5. ESBRIET [Suspect]
     Active Substance: PIRFENIDONE
     Dosage: 8 CAPSULES
     Route: 048
     Dates: start: 201910, end: 2019
  6. ESBRIET [Suspect]
     Active Substance: PIRFENIDONE
     Dosage: GRADUALLY INCREASING WITH ONE CAPSULE AT A TIME UNTIL REACHING 2403 MG DAILY
     Route: 048
     Dates: start: 20190821, end: 20190829
  7. ESBRIET [Suspect]
     Active Substance: PIRFENIDONE
     Dosage: TOOK ONLY 1 CAPSULE
     Route: 048
     Dates: start: 20190925, end: 20190925
  8. ESBRIET [Suspect]
     Active Substance: PIRFENIDONE
     Dosage: SLOW TITRATION; WILL INCREASE ONE CAPSULE SLOWLY
     Route: 048
     Dates: start: 20191001, end: 20191007
  9. ESBRIET [Suspect]
     Active Substance: PIRFENIDONE
     Dosage: FLUCTUATES DOSAGE BETWEEN 6 ? 8 CAPSULES DAILY
     Route: 048
     Dates: start: 201912, end: 202012
  10. ZANTAC [Concomitant]
     Active Substance: RANITIDINE HYDROCHLORIDE
     Indication: PRODUCT USED FOR UNKNOWN INDICATION
     Dosage: PREVIOUSLY ZANTAC 150 MG TWICE DAILY AND SWITCHED FOR PANTOPRAZOLE 2019)
     Route: 065
     Dates: start: 2019
  11. ESBRIET [Suspect]
     Active Substance: PIRFENIDONE
     Route: 048
     Dates: start: 20180929, end: 20181005
  12. ESBRIET [Suspect]
     Active Substance: PIRFENIDONE
     Dosage: ON HOLD
     Route: 048
     Dates: end: 2021
  13. ZOLADEX [Concomitant]
     Active Substance: GOSERELIN ACETATE
     Indication: PRODUCT USED FOR UNKNOWN INDICATION
  14. ESBRIET [Suspect]
     Active Substance: PIRFENIDONE
     Route: 048
     Dates: start: 20190830, end: 20190912
  15. ESBRIET [Suspect]
     Active Substance: PIRFENIDONE
     Route: 048
     Dates: start: 201911, end: 20191116
  16. ESBRIET [Suspect]
     Active Substance: PIRFENIDONE
     Dosage: 6?8 1602?2136 MG MILLIGRAM(S)
     Route: 048
     Dates: start: 2019
  17. ESBRIET [Suspect]
     Active Substance: PIRFENIDONE
     Route: 048
     Dates: start: 20190830, end: 20190912
  18. ACETYLSALICYLIC ACID [Concomitant]
     Active Substance: ASPIRIN
     Indication: PRODUCT USED FOR UNKNOWN INDICATION
     Route: 048
  19. SALBUTAMOL [Concomitant]
     Active Substance: ALBUTEROL
     Indication: PRODUCT USED FOR UNKNOWN INDICATION
  20. ESBRIET [Suspect]
     Active Substance: PIRFENIDONE
     Indication: IDIOPATHIC PULMONARY FIBROSIS
     Route: 048
     Dates: start: 20180922, end: 20180928
  21. ESBRIET [Suspect]
     Active Substance: PIRFENIDONE
     Dosage: FLUCTUATES DOSAGE BETWEEN 7 ? 9 CAPSULES DAILY
     Route: 048
     Dates: start: 20191117
  22. VITAMIN D [ERGOCALCIFEROL] [Concomitant]
     Active Substance: ERGOCALCIFEROL
     Indication: PRODUCT USED FOR UNKNOWN INDICATION
  23. ESBRIET [Suspect]
     Active Substance: PIRFENIDONE
     Route: 048
     Dates: start: 20180929, end: 20181005
  24. ESBRIET [Suspect]
     Active Substance: PIRFENIDONE
     Dosage: SLOW TITRATION; WILL INCREASE ONE CAPSULE SLOWLY
     Route: 048
     Dates: start: 201910, end: 201910
  25. PANTOPRAZOLE [Concomitant]
     Active Substance: PANTOPRAZOLE
     Dosage: PREVIOUSLY ZANTAC 150 MG TWICE DAILY AND SWITCHED FOR PANTOPRAZOLE 2019)
     Dates: start: 2019
  26. ESBRIET [Suspect]
     Active Substance: PIRFENIDONE
     Dosage: SLOW TITRATION; WILL INCREASE ONE CAPSULE SLOWLY
     Route: 048
     Dates: start: 20191001, end: 201910
  27. ESBRIET [Suspect]
     Active Substance: PIRFENIDONE
     Route: 048
     Dates: start: 2019, end: 2019
  28. ESBRIET [Suspect]
     Active Substance: PIRFENIDONE
     Dosage: SLOW TITRATION; INCREASE BY ONE CAPSULE
     Route: 048
     Dates: start: 201910, end: 201910
  29. ESBRIET [Suspect]
     Active Substance: PIRFENIDONE
     Route: 048
     Dates: start: 20181006, end: 20190307
  30. ESBRIET [Suspect]
     Active Substance: PIRFENIDONE
     Route: 048
     Dates: start: 20180922, end: 20180928
  31. ESBRIET [Suspect]
     Active Substance: PIRFENIDONE
     Dosage: 7 CAPSULES PER DAY
     Route: 048
     Dates: start: 201911, end: 20191116
  32. ESBRIET [Suspect]
     Active Substance: PIRFENIDONE
     Dosage: TOOK ONLY 1 CAPSULE
     Route: 048
     Dates: start: 20190925, end: 20190925
  33. ESBRIET [Suspect]
     Active Substance: PIRFENIDONE
     Route: 048
     Dates: start: 20190308, end: 20190820
  34. ESBRIET [Suspect]
     Active Substance: PIRFENIDONE
     Route: 048
     Dates: start: 20190308, end: 20190820
  35. ESBRIET [Suspect]
     Active Substance: PIRFENIDONE
     Route: 048
     Dates: start: 202012
  36. METOPROLOL. [Concomitant]
     Active Substance: METOPROLOL
     Indication: PRODUCT USED FOR UNKNOWN INDICATION
     Route: 065
  37. ATROVENT [Concomitant]
     Active Substance: IPRATROPIUM BROMIDE
     Indication: PRODUCT USED FOR UNKNOWN INDICATION

REACTIONS (17)
  - Diarrhoea [Unknown]
  - Flatulence [Recovering/Resolving]
  - Gastric disorder [Unknown]
  - Skin cancer [Unknown]
  - Hernia perforation [Fatal]
  - Nasopharyngitis [Not Recovered/Not Resolved]
  - Anal incontinence [Unknown]
  - Pneumonia [Unknown]
  - Weight decreased [Unknown]
  - Constipation [Not Recovered/Not Resolved]
  - Wheezing [Unknown]
  - Productive cough [Unknown]
  - Fall [Unknown]
  - Lower respiratory tract infection [Unknown]
  - Dyspnoea [Recovering/Resolving]
  - Diarrhoea [Not Recovered/Not Resolved]
  - Abdominal pain [Fatal]

NARRATIVE: CASE EVENT DATE: 201902
